FAERS Safety Report 21124893 (Version 1)
Quarter: 2022Q3

REPORT INFORMATION
  Report Type: Spontaneous
  Country: US (occurrence: US)
  Receive Date: 20220725
  Receipt Date: 20220725
  Transmission Date: 20221027
  Serious: Yes (Other)
  Sender: FDA-Public Use
  Company Number: US-Merck Healthcare KGaA-9337365

PATIENT
  Age: 59 Year
  Sex: Male

DRUGS (2)
  1. ERBITUX [Suspect]
     Active Substance: CETUXIMAB
     Indication: Squamous cell carcinoma of the oral cavity
     Dosage: UNK, UNKNOWN
     Route: 042
     Dates: start: 201702
  2. PACLITAXEL [Concomitant]
     Active Substance: PACLITAXEL
     Indication: Squamous cell carcinoma of the oral cavity
     Dosage: UNK, UNKNOWN
     Route: 065
     Dates: start: 201702, end: 201807

REACTIONS (6)
  - Small intestinal stenosis [Unknown]
  - Feeding intolerance [Unknown]
  - Stoma site extravasation [Recovered/Resolved]
  - Gastritis [Unknown]
  - Enteritis [Unknown]
  - Off label use [Unknown]

NARRATIVE: CASE EVENT DATE: 20170301
